FAERS Safety Report 10779421 (Version 1)
Quarter: 2015Q1

REPORT INFORMATION
  Report Type: Spontaneous
  Country: FR (occurrence: None)
  Receive Date: 20150206
  Receipt Date: 20150206
  Transmission Date: 20150721
  Serious: Yes (Death, Hospitalization)
  Sender: FDA-Public Use
  Company Number: NSR_01816_2015

PATIENT
  Age: 56 Year
  Sex: Female

DRUGS (3)
  1. PARACETAMOL (PARACETAMOL) [Suspect]
     Active Substance: ACETAMINOPHEN
     Indication: PRODUCT USED FOR UNKNOWN INDICATION
     Dosage: DF
  2. PROPRANOLOL [Suspect]
     Active Substance: PROPRANOLOL\PROPRANOLOL HYDROCHLORIDE
     Indication: PRODUCT USED FOR UNKNOWN INDICATION
     Dosage: 4 G - 9.43 UMOL/L
  3. ALPRAZOLAM (ALPRAZOLAM) [Suspect]
     Active Substance: ALPRAZOLAM
     Indication: PRODUCT USED FOR UNKNOWN INDICATION
     Dosage: DF

REACTIONS (7)
  - Sinoatrial block [None]
  - Toxicity to various agents [None]
  - Shock [None]
  - Multi-organ failure [None]
  - Exposure via ingestion [None]
  - Heart rate decreased [None]
  - Intentional overdose [None]
